FAERS Safety Report 21705331 (Version 1)
Quarter: 2022Q4

REPORT INFORMATION
  Report Type: Spontaneous
  Country: ZA (occurrence: None)
  Receive Date: 20221209
  Receipt Date: 20221209
  Transmission Date: 20230113
  Serious: Yes (Hospitalization)
  Sender: FDA-Public Use
  Company Number: ZA-ROCHE-3191683

PATIENT
  Age: 57 Year
  Sex: Female

DRUGS (4)
  1. RITUXIMAB [Suspect]
     Active Substance: RITUXIMAB
     Indication: Vasculitis
     Dosage: REPEATED 6-MONTHLY
     Route: 041
     Dates: start: 202111
  2. RITUXIMAB [Suspect]
     Active Substance: RITUXIMAB
     Indication: Arteritis
  3. RITUXIMAB [Suspect]
     Active Substance: RITUXIMAB
     Indication: Systemic lupus erythematosus
  4. AZATHIOPRINE [Concomitant]
     Active Substance: AZATHIOPRINE
     Route: 065
     Dates: start: 202108

REACTIONS (8)
  - Off label use [Unknown]
  - Vasculitis [Unknown]
  - Arthralgia [Unknown]
  - Neck pain [Unknown]
  - Inflammation [Unknown]
  - Cardiac disorder [Unknown]
  - Stent placement [Unknown]
  - COVID-19 [Unknown]
